FAERS Safety Report 7927304-X (Version None)
Quarter: 2011Q4

REPORT INFORMATION
  Report Type: 
  Country: None (occurrence: None)
  Receive Date: 20111118
  Receipt Date: 20111110
  Transmission Date: 20120403
  Serious: Yes (Hospitalization)
  Sender: FDA-Public Use
  Company Number: PHHY2011HU96939

PATIENT
  Age: 68 Year
  Sex: Male

DRUGS (6)
  1. ANTIHYPERTENSIVE DRUGS [Concomitant]
  2. ANTIBIOTICS [Concomitant]
  3. INDACATEROL [Suspect]
     Indication: CHRONIC OBSTRUCTIVE PULMONARY DISEASE
     Dosage: 300 UG, QD
     Dates: start: 20110201, end: 20110420
  4. CORTICOSTEROIDS [Concomitant]
     Route: 048
  5. TIOTROPIUM [Concomitant]
  6. SALMETEROL [Concomitant]

REACTIONS (3)
  - CHRONIC OBSTRUCTIVE PULMONARY DISEASE [None]
  - RESPIRATORY FAILURE [None]
  - BLADDER CANCER [None]
